FAERS Safety Report 8342643 (Version 20)
Quarter: 2012Q4

REPORT INFORMATION
  Report Type: 
  Country: GB (occurrence: GB)
  Receive Date: 20120118
  Receipt Date: 20121030
  Transmission Date: 20130627
  Serious: Yes (Hospitalization, Other)
  Sender: FDA-Public Use
  Company Number: PHFR2012GB000671

PATIENT
  Age: 45 Year
  Sex: Male

DRUGS (7)
  1. CLOZARIL [Suspect]
     Indication: SCHIZOPHRENIA
     Dosage: 100mg mane 400mg nocte daily
     Route: 048
     Dates: start: 20010515
  2. CLOZARIL [Suspect]
     Dosage: 400 mg, daily
     Route: 048
     Dates: start: 20120125, end: 20120312
  3. CLOZARIL [Suspect]
     Dosage: UNK UKN, UNK
     Route: 048
     Dates: start: 20120912
  4. ZOPICLON [Concomitant]
     Indication: INSOMNIA
     Dosage: 7.5 mg, daily
  5. THIAMINE [Concomitant]
     Dosage: 100 mg, daily
     Route: 048
  6. VITAMIN A [Concomitant]
     Dosage: UNK UKN, UNK
  7. LANSOPRAZOLE [Concomitant]
     Indication: GASTRITIS
     Dosage: 30 mg, UNK

REACTIONS (24)
  - Schizophrenia [Unknown]
  - Fall [Recovered/Resolved]
  - Hepatic failure [Not Recovered/Not Resolved]
  - Hepatitis C [Not Recovered/Not Resolved]
  - Hypersplenism [Unknown]
  - Portal hypertension [Not Recovered/Not Resolved]
  - Periorbital contusion [Unknown]
  - Jaw fracture [Unknown]
  - Alcoholic liver disease [Unknown]
  - Hypotension [Unknown]
  - Liver function test abnormal [Recovering/Resolving]
  - Eosinophil count increased [Recovered/Resolved]
  - Alcoholism [Not Recovered/Not Resolved]
  - General physical condition abnormal [Unknown]
  - Malaise [Not Recovered/Not Resolved]
  - Lymphocyte count decreased [Recovering/Resolving]
  - Skin disorder [Unknown]
  - Scab [Unknown]
  - Feeling abnormal [Unknown]
  - Confusional state [Recovered/Resolved]
  - Thrombocytopenia [Not Recovered/Not Resolved]
  - Neutropenia [Not Recovered/Not Resolved]
  - White blood cell count decreased [Not Recovered/Not Resolved]
  - Antipsychotic drug level increased [Unknown]
